FAERS Safety Report 6212560-9 (Version None)
Quarter: 2009Q2

REPORT INFORMATION
  Report Type: 
  Country: None (occurrence: None)
  Receive Date: 20090603
  Receipt Date: 20090522
  Transmission Date: 20091009
  Serious: Yes (Other)
  Sender: FDA-Public Use
  Company Number: PHEH2008US11321

PATIENT
  Sex: Female
  Weight: 58.05 kg

DRUGS (3)
  1. FEMARA [Suspect]
     Dosage: 2.5 MG, QD
     Route: 048
     Dates: start: 20070501, end: 20070501
  2. ZOCOR [Concomitant]
     Dosage: 40 MG
  3. PREMARIN [Concomitant]
     Dosage: 2 TIMES PER WEEK

REACTIONS (11)
  - ALOPECIA [None]
  - ARTHRALGIA [None]
  - BLOOD THYROID STIMULATING HORMONE INCREASED [None]
  - DRUG DISPENSING ERROR [None]
  - FATIGUE [None]
  - HOT FLUSH [None]
  - MALAISE [None]
  - NIGHT SWEATS [None]
  - OSTEOPOROSIS [None]
  - THYROID DISORDER [None]
  - WEIGHT INCREASED [None]
